FAERS Safety Report 7369638-6 (Version None)
Quarter: 2011Q1

REPORT INFORMATION
  Report Type: 
  Country: None (occurrence: None)
  Receive Date: 20110323
  Receipt Date: 20110316
  Transmission Date: 20110831
  Serious: Yes (Hospitalization, Other)
  Sender: FDA-Public Use
  Company Number: FR-PFIZER INC-2011057359

PATIENT
  Age: 75 Year
  Sex: Female

DRUGS (13)
  1. NOVORAPID [Concomitant]
     Dosage: UNKNOWN
  2. LANTUS [Concomitant]
     Dosage: UNKNOWN
  3. OLMESARTAN [Concomitant]
     Dosage: 20 MG, UNK
  4. TRAMADOL HCL [Suspect]
     Dosage: 100 MG, 2X/DAY
     Route: 048
  5. MOLSIDOMINE [Concomitant]
     Dosage: 4 MG, UNK
  6. CRESTOR [Concomitant]
     Dosage: 5 MG, UNK
  7. AMLODIPINE [Concomitant]
     Dosage: 5 MG, UNK
  8. METHOTREXATE [Concomitant]
     Indication: TEMPORAL ARTERITIS
     Dosage: 10 MG, WEEKLY
     Dates: start: 20101101
  9. NEXIUM [Suspect]
     Dosage: 40 MG, 1X/DAY
     Route: 048
     Dates: end: 20110131
  10. ACETAMINOPHEN AND TRAMADOL HCL [Concomitant]
     Dosage: UNKNOWN
  11. LYRICA [Suspect]
     Dosage: 75 MG, 1X/DAY
     Route: 048
     Dates: end: 20110127
  12. BISOPROLOL [Concomitant]
     Dosage: 5 MG, UNK
  13. CORTANCYL [Concomitant]
     Indication: TEMPORAL ARTERITIS
     Dosage: 40 MG, 1X/DAY
     Dates: start: 20101101

REACTIONS (6)
  - INSOMNIA [None]
  - DISORIENTATION [None]
  - HYPONATRAEMIA [None]
  - HYPERGLYCAEMIA [None]
  - HALLUCINATION, VISUAL [None]
  - CONFUSIONAL STATE [None]
